FAERS Safety Report 9206038 (Version 2)
Quarter: 2013Q2

REPORT INFORMATION
  Report Type: Spontaneous
  Country: GB (occurrence: GB)
  Receive Date: 20130403
  Receipt Date: 20130522
  Transmission Date: 20140414
  Serious: Yes (Other)
  Sender: FDA-Public Use
  Company Number: GB-JNJFOC-20130317932

PATIENT
  Age: 50 Year
  Sex: Male
  Weight: 86 kg

DRUGS (1)
  1. NICORETTE QUICKMIST 1MG NICO-SPRAY [Suspect]
     Indication: SMOKING CESSATION THERAPY
     Dosage: USING FOR OVER A YEAR, AVERAGE OF 4 UNITS A WEEK.
     Route: 065

REACTIONS (3)
  - Nicotine dependence [Unknown]
  - Intentional drug misuse [Unknown]
  - Overdose [Unknown]
